FAERS Safety Report 9097348 (Version 2)
Quarter: 2013Q4

REPORT INFORMATION
  Report Type: Spontaneous
  Country: GB (occurrence: GB)
  Receive Date: 20130212
  Receipt Date: 20131031
  Transmission Date: 20140711
  Serious: Yes (Death, Life-Threatening, Other)
  Sender: FDA-Public Use
  Company Number: GB-PFIZER INC-2013050376

PATIENT
  Age: 1 Year
  Sex: Female
  Weight: 12 kg

DRUGS (1)
  1. METHYLPREDNISOLONE SODIUM SUCCINATE [Suspect]
     Indication: ACUTE DISSEMINATED ENCEPHALOMYELITIS
     Dosage: 390 MG/KG, UNK
     Route: 051
     Dates: start: 20110204, end: 20110204

REACTIONS (9)
  - Encephalopathy [Fatal]
  - Hypertensive crisis [Not Recovered/Not Resolved]
  - Speech disorder [Not Recovered/Not Resolved]
  - VIIth nerve paralysis [Not Recovered/Not Resolved]
  - Pain [Not Recovered/Not Resolved]
  - Convulsion [Not Recovered/Not Resolved]
  - Hyperhidrosis [Not Recovered/Not Resolved]
  - Vomiting [Not Recovered/Not Resolved]
  - Medication error [Not Recovered/Not Resolved]
